FAERS Safety Report 9877323 (Version 1)
Quarter: 2014Q1

REPORT INFORMATION
  Report Type: Spontaneous
  Country: FR (occurrence: FR)
  Receive Date: 20140206
  Receipt Date: 20140206
  Transmission Date: 20141002
  Serious: Yes (Other)
  Sender: FDA-Public Use
  Company Number: FR-BAYER-2014-014719

PATIENT
  Age: 69 Year
  Sex: Male

DRUGS (8)
  1. CIFLOX [Suspect]
     Indication: URINARY TRACT INFECTION
     Dosage: UNK
     Route: 042
     Dates: start: 20120619, end: 20120621
  2. ZYPREXA [Suspect]
     Dosage: UNK
     Route: 048
     Dates: start: 20120619, end: 20120621
  3. TENORMINE [Concomitant]
  4. KARDEGIC [Concomitant]
  5. PRASUGREL [Concomitant]
  6. TAHOR [Concomitant]
  7. ATACAND [CANDESARTAN CILEXETIL] [Concomitant]
  8. TIENAM [Concomitant]
     Indication: URINARY TRACT INFECTION

REACTIONS (2)
  - Transaminases increased [Recovered/Resolved]
  - Condition aggravated [Recovered/Resolved]
